FAERS Safety Report 9152258 (Version 1)
Quarter: 2013Q1

REPORT INFORMATION
  Report Type: Report from Study
  Country: US (occurrence: US)
  Receive Date: 20130308
  Receipt Date: 20130308
  Transmission Date: 20140127
  Serious: Yes (Hospitalization)
  Sender: FDA-Public Use
  Company Number: US-GLAXOSMITHKLINE-Z0018030A

PATIENT
  Age: 79 Year
  Sex: Female
  Weight: 52.7 kg

DRUGS (5)
  1. BLINDED TRIAL MEDICATION [Suspect]
     Indication: ACUTE CORONARY SYNDROME
     Route: 048
     Dates: start: 20110725
  2. DILAUDID [Suspect]
     Indication: PAIN MANAGEMENT
     Dosage: 1MG AS REQUIRED
     Route: 030
     Dates: start: 20121205, end: 20121206
  3. DILAUDID [Suspect]
     Indication: PAIN MANAGEMENT
     Dosage: 2MG SINGLE DOSE
     Route: 030
     Dates: start: 20121206, end: 20121206
  4. PHENERGAN [Suspect]
     Indication: PAIN MANAGEMENT
     Dosage: 25MG SINGLE DOSE
     Route: 030
     Dates: start: 20121206, end: 20121206
  5. ZOFRAN [Suspect]
     Indication: PAIN MANAGEMENT
     Dosage: 4MG SINGLE DOSE
     Route: 042
     Dates: start: 20121205, end: 20121205

REACTIONS (1)
  - Hypoxia [Recovered/Resolved]
